FAERS Safety Report 6062354-2 (Version None)
Quarter: 2009Q1

REPORT INFORMATION
  Report Type: 
  Country: None (occurrence: None)
  Receive Date: 20090203
  Receipt Date: 20090121
  Transmission Date: 20090719
  Serious: Yes (Death)
  Sender: FDA-Public Use
  Company Number: US-JNJFOC-20090107155

PATIENT
  Sex: Female
  Weight: 55.79 kg

DRUGS (11)
  1. DURAGESIC-100 [Suspect]
     Indication: DRUG USE FOR UNKNOWN INDICATION
     Route: 062
  2. OXYCODONE HCL [Concomitant]
  3. OPIATES [Concomitant]
  4. PHENERGAN HCL [Concomitant]
  5. FLEXERIL [Concomitant]
  6. ELAVIL [Concomitant]
  7. TYLENOL [Concomitant]
  8. DIPHENHYDRAMINE HCL [Concomitant]
  9. ROXYCODONE [Concomitant]
  10. WARFARIN SODIUM [Concomitant]
  11. BISACODYL [Concomitant]

REACTIONS (1)
  - ARTERIOSCLEROSIS [None]
